FAERS Safety Report 6801905-4 (Version None)
Quarter: 2010Q2

REPORT INFORMATION
  Report Type: 
  Country: None (occurrence: None)
  Receive Date: 20100629
  Receipt Date: 20100623
  Transmission Date: 20101027
  Serious: Yes (Hospitalization, Disabling)
  Sender: FDA-Public Use
  Company Number: GB-PFIZER INC-2010057486

PATIENT
  Age: 81 Year
  Sex: Female

DRUGS (11)
  1. EXEMESTANE [Suspect]
     Indication: BREAST CANCER
     Dosage: UNK
     Route: 048
     Dates: start: 20050406
  2. SIMVASTATIN [Concomitant]
     Indication: BLOOD CHOLESTEROL INCREASED
     Dosage: 60 MG, UNK
     Route: 048
     Dates: start: 20090115
  3. DUOTRAV [Concomitant]
     Indication: GLAUCOMA
     Dosage: 25 MG, 1X/DAY
     Route: 048
     Dates: start: 20081015
  4. ALENDRONIC ACID [Concomitant]
     Indication: OSTEOPOROSIS
     Dosage: 70 MG, WEEKLY
     Dates: start: 20080709
  5. OMEPRAZOLE [Concomitant]
     Indication: REFLUX GASTRITIS
     Dosage: 20 MG, UNK
     Route: 048
     Dates: start: 20070402
  6. CALCICHEW [Concomitant]
     Indication: OSTEOPOROSIS
     Dosage: TWO TABLETS DAILY
     Route: 048
     Dates: start: 20050331
  7. NITROGLYCERIN [Concomitant]
     Indication: ANGINA PECTORIS
     Dosage: ONE TABLET AS NEEDED
     Route: 048
     Dates: start: 19980101
  8. QUININE SULFATE [Concomitant]
     Indication: MUSCLE SPASMS
     Dosage: 200 MG, UNK
     Route: 048
     Dates: start: 19980101
  9. BISOPROLOL [Concomitant]
     Indication: ANGINA PECTORIS
     Dosage: 1.25 MG, UNK
     Route: 048
     Dates: start: 20050209
  10. ISOSORBIDE MONONITRATE [Concomitant]
     Indication: ANGINA PECTORIS
     Dosage: 50 MG, UNK
     Route: 048
     Dates: start: 19970101
  11. ACETYLSALICYLIC ACID [Concomitant]
     Indication: ANGINA PECTORIS
     Dosage: 75 MG, UNK
     Route: 048
     Dates: start: 19970101

REACTIONS (2)
  - FALL [None]
  - PELVIC FRACTURE [None]
